FAERS Safety Report 5450624-8 (Version None)
Quarter: 2007Q3

REPORT INFORMATION
  Report Type: 
  Country: None (occurrence: None)
  Receive Date: 20070910
  Receipt Date: 20070822
  Transmission Date: 20080115
  Serious: Yes (Other)
  Sender: FDA-Public Use
  Company Number: 6007/2007S1007945

PATIENT
  Age: 18 Year
  Sex: Male

DRUGS (1)
  1. AMNESTEEM [Suspect]
     Indication: ACNE
     Dosage: 40 MG, QD, PO; 80 MG, QD, PO
     Route: 048
     Dates: start: 20060901, end: 20070101

REACTIONS (4)
  - DELUSIONAL DISORDER, UNSPECIFIED TYPE [None]
  - PSYCHOTIC DISORDER [None]
  - STRESS [None]
  - TRANSAMINASES INCREASED [None]
